FAERS Safety Report 5233913-1 (Version None)
Quarter: 2007Q1

REPORT INFORMATION
  Report Type: 
  Country: None (occurrence: None)
  Receive Date: 20070208
  Receipt Date: 20060608
  Transmission Date: 20070707
  Serious: Yes (Other)
  Sender: FDA-Public Use
  Company Number: US-BRISTOL-MYERS SQUIBB COMPANY-13410642

PATIENT
  Age: 68 Year
  Sex: Female

DRUGS (1)
  1. AZACTAM [Suspect]
     Indication: PROPHYLAXIS
     Route: 042

REACTIONS (2)
  - PETECHIAE [None]
  - PLATELET COUNT DECREASED [None]
